FAERS Safety Report 5308947-9 (Version None)
Quarter: 2007Q2

REPORT INFORMATION
  Report Type: 
  Country: None (occurrence: None)
  Receive Date: 20070426
  Receipt Date: 20070416
  Transmission Date: 20071010
  Serious: Yes (Other)
  Sender: FDA-Public Use
  Company Number: BR-PFIZER INC-2007031094

PATIENT
  Sex: Male

DRUGS (3)
  1. DOSTINEX [Suspect]
     Indication: ACROMEGALY
     Route: 048
  2. ATENOLOL [Concomitant]
  3. CAPTOPRIL [Concomitant]

REACTIONS (2)
  - DIZZINESS [None]
  - TACHYCARDIA [None]
